FAERS Safety Report 23867912 (Version 1)
Quarter: 2024Q2

REPORT INFORMATION
  Report Type: Spontaneous
  Country: CN (occurrence: CN)
  Receive Date: 20240517
  Receipt Date: 20240517
  Transmission Date: 20240716
  Serious: Yes (Hospitalization)
  Sender: FDA-Public Use
  Company Number: CN-Merck Healthcare KGaA-2024024850

PATIENT
  Age: 59 Year
  Sex: Male
  Weight: 60 kg

DRUGS (5)
  1. ERBITUX [Suspect]
     Active Substance: CETUXIMAB
     Indication: Rectal cancer
     Dosage: 820 MG, UNKNOWN
     Route: 041
     Dates: start: 20240322, end: 20240322
  2. OXALIPLATIN [Suspect]
     Active Substance: OXALIPLATIN
     Indication: Rectal cancer
     Dosage: 140 MG, UNKNOWN
     Route: 041
     Dates: start: 20240322, end: 20240322
  3. LEUCOVORIN CALCIUM [Suspect]
     Active Substance: LEUCOVORIN CALCIUM
     Indication: Prophylaxis
     Dosage: 650 MG, UNKNOWN
     Route: 041
     Dates: start: 20240322, end: 20240322
  4. FLUOROURACIL [Suspect]
     Active Substance: FLUOROURACIL
     Indication: Rectal cancer
     Dosage: 0.65 G, UNKNOWN
     Route: 040
     Dates: start: 20240322, end: 20240322
  5. FLUOROURACIL [Suspect]
     Active Substance: FLUOROURACIL
     Dosage: 3.9 G, UNKNOWN
     Route: 042
     Dates: start: 20240322, end: 20240322

REACTIONS (1)
  - Myelosuppression [Recovering/Resolving]

NARRATIVE: CASE EVENT DATE: 20240405
